FAERS Safety Report 6857939-7 (Version None)
Quarter: 2010Q3

REPORT INFORMATION
  Report Type: 
  Country: None (occurrence: None)
  Receive Date: 20100714
  Receipt Date: 20100705
  Transmission Date: 20110219
  Serious: Yes (Hospitalization)
  Sender: FDA-Public Use
  Company Number: 2010SP037720

PATIENT
  Age: 81 Year
  Sex: Female

DRUGS (7)
  1. REFLEX (MITAZAPINE /01293201/ [Suspect]
     Indication: DEPRESSION
     Dosage: 15MG;PO;
     Route: 048
     Dates: start: 20100522, end: 20100601
  2. LEVOTHYROXINE SODIUM [Concomitant]
  3. NIFEDIPINE [Concomitant]
  4. TOCOPHEROL CONCENTRATE CAP [Concomitant]
  5. PAXIL [Concomitant]
  6. LEDORMIN [Concomitant]
  7. ALPRAZOLAM [Concomitant]

REACTIONS (2)
  - EPILEPSY [None]
  - THIRST [None]
